FAERS Safety Report 6688835-6 (Version None)
Quarter: 2010Q2

REPORT INFORMATION
  Report Type: 
  Country: None (occurrence: None)
  Receive Date: 20100420
  Receipt Date: 20100412
  Transmission Date: 20101027
  Serious: Yes (Other)
  Sender: FDA-Public Use
  Company Number: US-PFIZER INC-2010025557

PATIENT
  Sex: Female
  Weight: 84.4 kg

DRUGS (15)
  1. LIPITOR [Suspect]
     Indication: BLOOD CHOLESTEROL INCREASED
     Dosage: 20 MG, DAILY
     Route: 048
  2. LIPITOR [Suspect]
     Dosage: 10 MG, DAILY
     Route: 048
     Dates: start: 19900101
  3. ACTOS [Concomitant]
     Indication: GLUCOSE TOLERANCE IMPAIRED
     Dosage: 30 MG, UNK
  4. AMITRIPTYLINE [Concomitant]
     Dosage: 100 MG, UNK
  5. HYDROCHLOROTHIAZIDE [Concomitant]
     Dosage: 12.5 MG, UNK
  6. PROTONIX [Concomitant]
     Dosage: 40 MG, UNK
  7. SUCRALFATE [Concomitant]
     Dosage: 1 G, UNK
  8. ACETAMINOPHEN [Concomitant]
     Dosage: 500 MG, 2X/DAY
  9. GLUCOSAMINE [Concomitant]
     Dosage: UNK
  10. VITAMIN D [Concomitant]
     Dosage: 1000 MG, DAILY
  11. ACETYLSALICYLIC ACID [Concomitant]
     Dosage: 81 MG, UNK
  12. CITRACAL [Concomitant]
     Dosage: 400 MG, UNK
  13. VITAMIN C [Concomitant]
     Dosage: 500 MG, UNK
  14. LEVOTHYROXINE [Concomitant]
     Indication: HYPOTHYROIDISM
     Dosage: 0.05 MG, UNK
  15. AROMASIN [Concomitant]
     Indication: BREAST CANCER
     Dosage: 25 MG, UNK

REACTIONS (5)
  - KNEE OPERATION [None]
  - LOWER LIMB FRACTURE [None]
  - MUSCULAR WEAKNESS [None]
  - ROAD TRAFFIC ACCIDENT [None]
  - STERNAL FRACTURE [None]
